FAERS Safety Report 9079919 (Version 1)
Quarter: 2013Q1

REPORT INFORMATION
  Report Type: Report from Study
  Country: US (occurrence: US)
  Receive Date: 20130130
  Receipt Date: 20130130
  Transmission Date: 20140127
  Serious: No
  Sender: FDA-Public Use
  Company Number: US-ABBOTT-12P-163-0959934-00

PATIENT
  Age: 56 Year
  Sex: Female

DRUGS (6)
  1. HUMIRA 40 MG/0.8 ML PEN [Suspect]
     Indication: ARTHRITIS ENTEROPATHIC
  2. HUMIRA 40 MG/0.8 ML PEN [Suspect]
     Dates: start: 20120516
  3. HUMIRA 40 MG/0.8 ML PEN [Suspect]
  4. RELIVE [Concomitant]
     Indication: MEDICAL DIET
     Dates: start: 201203
  5. B12 [Concomitant]
     Indication: VITAMIN SUPPLEMENTATION
  6. B6 [Concomitant]
     Indication: VITAMIN SUPPLEMENTATION

REACTIONS (4)
  - Inappropriate schedule of drug administration [Unknown]
  - Influenza [Not Recovered/Not Resolved]
  - Abdominal pain upper [Not Recovered/Not Resolved]
  - Diarrhoea [Not Recovered/Not Resolved]
